FAERS Safety Report 5388453-6 (Version None)
Quarter: 2007Q3

REPORT INFORMATION
  Report Type: 
  Country: None (occurrence: None)
  Receive Date: 20070716
  Receipt Date: 20070709
  Transmission Date: 20080115
  Serious: No
  Sender: FDA-Public Use
  Company Number: US-ELI_LILLY_AND_COMPANY-US200707000533

PATIENT
  Sex: Male

DRUGS (3)
  1. ZYPREXA [Suspect]
     Indication: DEPRESSION
     Dosage: 15 MG, DAILY (1/D)
     Dates: start: 20050603, end: 20051122
  2. CYMBALTA [Suspect]
     Indication: DEPRESSION
  3. GEODON [Concomitant]

REACTIONS (8)
  - ASTHENIA [None]
  - CORRECTIVE LENS USER [None]
  - DISTURBANCE IN ATTENTION [None]
  - DIZZINESS [None]
  - DRUG INEFFECTIVE [None]
  - EPISTAXIS [None]
  - FEELING ABNORMAL [None]
  - VISUAL DISTURBANCE [None]
